FAERS Safety Report 22151857 (Version 1)
Quarter: 2023Q1

REPORT INFORMATION
  Report Type: Spontaneous
  Country: US (occurrence: US)
  Receive Date: 20230329
  Receipt Date: 20230329
  Transmission Date: 20230418
  Serious: No
  Sender: FDA-Public Use
  Company Number: US-SEBELA IRELAND LIMITED-2022SEB00011

PATIENT
  Age: 81 Year
  Sex: Female
  Weight: 86.168 kg

DRUGS (8)
  1. NAFTIFINE [Suspect]
     Active Substance: NAFTIFINE
     Indication: Onychomycosis
     Dosage: 1 DOSAGE FORM, 1X/DAY ENOUGH TO COVER THE NAIL
     Route: 061
     Dates: start: 202111
  2. NAFTIFINE [Suspect]
     Active Substance: NAFTIFINE
     Dosage: ^UPPED THE AMOUNT^
     Route: 061
  3. NAFTIN [Suspect]
     Active Substance: NAFTIFINE HYDROCHLORIDE
     Indication: Onychomycosis
     Dosage: USED ENOUGH TO COVER THE NAIL 2X/DAY
     Route: 061
     Dates: start: 2020, end: 2021
  4. NAFTIN [Suspect]
     Active Substance: NAFTIFINE HYDROCHLORIDE
     Dosage: USED ENOUGH TO COVER THE NAIL 1X/DAY
     Route: 061
     Dates: start: 2021, end: 2021
  5. ATORVASTATIN [Concomitant]
     Active Substance: ATORVASTATIN
  6. ATENOLOL [Concomitant]
     Active Substance: ATENOLOL
  7. LOSARTAN [Concomitant]
     Active Substance: LOSARTAN
  8. UNSPECIFIED INGREDIENT [Concomitant]
     Active Substance: UNSPECIFIED INGREDIENT

REACTIONS (3)
  - Therapeutic product effect incomplete [Not Recovered/Not Resolved]
  - Onychomycosis [Not Recovered/Not Resolved]
  - Off label use [Not Recovered/Not Resolved]

NARRATIVE: CASE EVENT DATE: 20200101
